FAERS Safety Report 4886009-2 (Version None)
Quarter: 2006Q1

REPORT INFORMATION
  Report Type: 
  Country: None (occurrence: None)
  Receive Date: 20060118
  Receipt Date: 20060118
  Transmission Date: 20060701
  Serious: Yes (Life-Threatening)
  Sender: FDA-Public Use
  Company Number: None

PATIENT
  Sex: Female
  Weight: 55.7924 kg

DRUGS (17)
  1. ADALIMUMAB (HUMIRA) 40 MG SQ Q WEEK [Suspect]
     Indication: RHEUMATOID ARTHRITIS
     Dosage: 40 MG SQ Q WEEK
     Route: 058
     Dates: start: 20050426, end: 20050726
  2. ENBREL [Suspect]
     Indication: RHEUMATOID ARTHRITIS
     Dosage: 25 MG SQ TWICE WEEKLY
     Route: 058
     Dates: start: 20010601, end: 20011101
  3. REMICADE [Suspect]
     Indication: RHEUMATOID ARTHRITIS
     Dosage: 5 MG/KG Q 4-6 WEEKS
     Dates: start: 20011101, end: 20051026
  4. AVALIDE [Concomitant]
  5. TOPROL-XL [Concomitant]
  6. ARAVA [Concomitant]
  7. ASPIRIN [Concomitant]
  8. FOLIC ACID [Concomitant]
  9. PREDNISONE [Concomitant]
  10. PREMARIN [Concomitant]
  11. ACYCLOVIR [Concomitant]
  12. NAPROXEN [Concomitant]
  13. CALCIUM W/ VIT [Concomitant]
  14. NEXIUM [Concomitant]
  15. FOSAMAX [Concomitant]
  16. ACTONEL [Concomitant]
  17. PROTONIX [Concomitant]

REACTIONS (1)
  - BREAST CANCER [None]
